FAERS Safety Report 16569426 (Version 4)
Quarter: 2019Q4

REPORT INFORMATION
  Report Type: Spontaneous
  Country: US (occurrence: US)
  Receive Date: 20190715
  Receipt Date: 20191008
  Transmission Date: 20200122
  Serious: No
  Sender: FDA-Public Use
  Company Number: US-009507513-1907USA004443

PATIENT
  Sex: Female

DRUGS (2)
  1. NEXPLANON [Suspect]
     Active Substance: ETONOGESTREL
     Dosage: 1 DOSAGE FORM IN HER LEFT ARM
     Route: 059
     Dates: start: 20190319
  2. NEXPLANON [Suspect]
     Active Substance: ETONOGESTREL
     Indication: CONTRACEPTION
     Dosage: 1 DOSAGE FORM PLACED IN HER LEFT ARM
     Route: 059
     Dates: start: 20160108

REACTIONS (18)
  - Complication associated with device [Not Recovered/Not Resolved]
  - Overdose [Unknown]
  - Contusion [Unknown]
  - Bacterial vaginosis [Unknown]
  - Hypomenorrhoea [Not Recovered/Not Resolved]
  - Crying [Unknown]
  - Complication of device removal [Not Recovered/Not Resolved]
  - Potassium hydroxide preparation positive [Unknown]
  - Oedema peripheral [Unknown]
  - Incorrect product administration duration [Unknown]
  - Peripheral swelling [Unknown]
  - Pain [Unknown]
  - Wrong technique in product usage process [Unknown]
  - Menstruation irregular [Not Recovered/Not Resolved]
  - Emotional distress [Unknown]
  - Pain in extremity [Unknown]
  - Depressed mood [Unknown]
  - Anxiety [Unknown]

NARRATIVE: CASE EVENT DATE: 2016
